FAERS Safety Report 7301355-0 (Version None)
Quarter: 2010Q4

REPORT INFORMATION
  Report Type: 
  Country: None (occurrence: None)
  Receive Date: 20101229
  Receipt Date: 20101028
  Transmission Date: 20110411
  Serious: No
  Sender: FDA-Public Use
  Company Number: 1000017061

PATIENT
  Age: 43 Year
  Sex: Female

DRUGS (4)
  1. BYSTOLIC [Suspect]
     Indication: PALPITATIONS
     Dosage: 2.5 MG (2.5 MG, 1 IN 1 D), ORAL
     Route: 048
     Dates: start: 20090101
  2. BYSTOLIC [Suspect]
     Indication: VENTRICULAR EXTRASYSTOLES
     Dosage: 2.5 MG (2.5 MG, 1 IN 1 D), ORAL
     Route: 048
     Dates: start: 20090101
  3. XANAX [Concomitant]
  4. PRILOSEC (OMEPRAZOLE) (OMEPRAZOLE) [Concomitant]

REACTIONS (1)
  - HYPOGLYCAEMIA [None]
